FAERS Safety Report 4692442-4 (Version None)
Quarter: 2005Q2

REPORT INFORMATION
  Report Type: 
  Country: None (occurrence: None)
  Receive Date: 20050613
  Receipt Date: 20050428
  Transmission Date: 20051028
  Serious: Yes (Hospitalization)
  Sender: FDA-Public Use
  Company Number: 2004-00625

PATIENT
  Age: 60 Year
  Sex: Male
  Weight: 69.4 kg

DRUGS (7)
  1. VELCADE [Suspect]
     Indication: MULTIPLE MYELOMA
     Dosage: SEE IMAGE
     Route: 042
     Dates: start: 20040816, end: 20040927
  2. VELCADE [Suspect]
     Indication: MULTIPLE MYELOMA
     Dosage: SEE IMAGE
     Route: 042
     Dates: start: 20041101
  3. ZOMETA [Concomitant]
  4. ARANESP [Concomitant]
  5. DECADRON [Concomitant]
  6. OXYCONTIN (OYYCODONE HYDROCHLORIDE) [Concomitant]
  7. PERCOCET [Concomitant]

REACTIONS (6)
  - COLONIC OBSTRUCTION [None]
  - DIARRHOEA [None]
  - GASTROENTERITIS VIRAL [None]
  - HYPOTENSION [None]
  - LARGE INTESTINE PERFORATION [None]
  - SEPSIS [None]
